FAERS Safety Report 24309046 (Version 2)
Quarter: 2024Q3

REPORT INFORMATION
  Report Type: Spontaneous
  Country: SK (occurrence: SK)
  Receive Date: 20240911
  Receipt Date: 20240930
  Transmission Date: 20241017
  Serious: Yes (Hospitalization, Other)
  Sender: ELI LILLY AND CO
  Company Number: SK-ELI_LILLY_AND_COMPANY-SK202409001358

PATIENT
  Age: 59 Year
  Sex: Male
  Weight: 79 kg

DRUGS (3)
  1. TALTZ [Suspect]
     Active Substance: IXEKIZUMAB
     Indication: Psoriasis
     Dosage: 160 MG, SINGLE (LOADING DOSE)
     Route: 058
     Dates: start: 20240527
  2. TALTZ [Suspect]
     Active Substance: IXEKIZUMAB
     Dosage: 80 MG, OTHER (EVERY 2 WEEKS)
     Route: 058
  3. TALTZ [Suspect]
     Active Substance: IXEKIZUMAB
     Dosage: 80 MG, MONTHLY (1/M)
     Route: 058

REACTIONS (10)
  - Cirrhosis alcoholic [Unknown]
  - Hepatic encephalopathy [Unknown]
  - Pneumonia [Unknown]
  - Oxygen saturation decreased [Unknown]
  - Hyponatraemia [Unknown]
  - Hypokalaemia [Unknown]
  - Hypochloraemia [Unknown]
  - Renal impairment [Unknown]
  - Anaemia macrocytic [Unknown]
  - Coagulopathy [Unknown]

NARRATIVE: CASE EVENT DATE: 20240601
